FAERS Safety Report 9773057 (Version 1)
Quarter: 2013Q4

REPORT INFORMATION
  Report Type: Spontaneous
  Country: US (occurrence: None)
  Receive Date: 20131217
  Receipt Date: 20131217
  Transmission Date: 20140711
  Serious: Yes (Hospitalization)
  Sender: FDA-Public Use
  Company Number: FK201305325

PATIENT
  Age: 57 Year
  Sex: Male

DRUGS (3)
  1. FLUOROURACIL [Suspect]
     Indication: COLON CANCER
     Dates: start: 201204, end: 201209
  2. OXALIPLATIN [Suspect]
     Indication: COLON CANCER
     Dates: start: 201204, end: 201209
  3. LEUCOVORIN CALCIUM [Suspect]
     Indication: COLON CANCER
     Dates: start: 201204, end: 201209

REACTIONS (4)
  - Portal hypertension [None]
  - Liver disorder [None]
  - Intrahepatic portal hepatic venous fistula [None]
  - Thrombocytopenia [None]
